FAERS Safety Report 19084003 (Version 2)
Quarter: 2021Q3

REPORT INFORMATION
  Report Type: Spontaneous
  Country: US (occurrence: US)
  Receive Date: 20210401
  Receipt Date: 20210908
  Transmission Date: 20211014
  Serious: Yes (Hospitalization)
  Sender: FDA-Public Use
  Company Number: US-ELI_LILLY_AND_COMPANY-US202103011845

PATIENT
  Age: 58 Year
  Sex: Male
  Weight: 138 kg

DRUGS (1)
  1. INSULIN LISPRO LILLY 25LIS75NPL KWIKPEN/MIRIOPEN [Suspect]
     Active Substance: INSULIN LISPRO
     Indication: TYPE 2 DIABETES MELLITUS
     Dosage: 20 U, OTHER (BEFORE EVERY MEAL)
     Route: 058
     Dates: start: 20210628

REACTIONS (3)
  - Coma [Unknown]
  - Delusion [Unknown]
  - Feeling abnormal [Unknown]

NARRATIVE: CASE EVENT DATE: 202008
